FAERS Safety Report 7606114-7 (Version None)
Quarter: 2011Q3

REPORT INFORMATION
  Report Type: 
  Country: None (occurrence: None)
  Receive Date: 20110713
  Receipt Date: 20110708
  Transmission Date: 20111222
  Serious: Yes (Hospitalization)
  Sender: FDA-Public Use
  Company Number: FR-PFIZER INC-2011154235

PATIENT
  Age: 69 Year
  Sex: Female

DRUGS (9)
  1. OZIDIA [Suspect]
  2. ALDALIX [Suspect]
     Indication: HYPERTENSION
     Dosage: 1 DF, 1X/DAY
     Route: 048
     Dates: end: 20060323
  3. CO-TRIATEC [Suspect]
     Indication: HYPERTENSION
     Dosage: 5 MG, 1X/DAY
     Route: 048
  4. GLUCOPHAGE [Suspect]
     Dosage: 850 MG, DAILY
     Route: 048
  5. VERAPAMIL [Suspect]
     Dosage: 240 MG, UNK
  6. LASIX [Concomitant]
     Dosage: UNK
     Dates: end: 20060301
  7. LASIX [Concomitant]
     Dosage: 2 TABLET IN THE MORNING AND 1 AT MIDDAY
  8. MEDIATENSYL [Concomitant]
     Dosage: 60 MG, 2X/DAY
  9. APROVEL [Suspect]
     Indication: HYPERTENSION
     Dosage: 300 MG, 1X/DAY
     Route: 048

REACTIONS (3)
  - HYPERKALAEMIA [None]
  - METABOLIC ACIDOSIS [None]
  - RENAL FAILURE ACUTE [None]
